FAERS Safety Report 24880502 (Version 2)
Quarter: 2025Q1

REPORT INFORMATION
  Report Type: Spontaneous
  Country: BE (occurrence: BE)
  Receive Date: 20250123
  Receipt Date: 20250207
  Transmission Date: 20250408
  Serious: Yes (Hospitalization, Other)
  Sender: TEVA
  Company Number: BE-TEVA-VS-3288030

PATIENT
  Age: 62 Year
  Sex: Male

DRUGS (5)
  1. VORICONAZOLE [Suspect]
     Active Substance: VORICONAZOLE
     Indication: Eye infection fungal
     Dosage: THEREAFTER
     Route: 065
  2. VORICONAZOLE [Suspect]
     Active Substance: VORICONAZOLE
     Indication: Eye infection fungal
     Dosage: ON DAY 1
     Route: 065
  3. MYCOPHENOLIC ACID [Suspect]
     Active Substance: MYCOPHENOLIC ACID
     Indication: Immunosuppressant drug therapy
     Route: 065
  4. METHYLPREDNISOLONE [Suspect]
     Active Substance: METHYLPREDNISOLONE
     Indication: Immunosuppressant drug therapy
     Route: 065
  5. TACROLIMUS [Suspect]
     Active Substance: TACROLIMUS
     Indication: Immunosuppressant drug therapy
     Route: 065

REACTIONS (11)
  - Drug-induced liver injury [Unknown]
  - Drug ineffective [Unknown]
  - Aspergillus infection [Recovering/Resolving]
  - VIth nerve paralysis [Recovering/Resolving]
  - Hypoaesthesia [Recovering/Resolving]
  - Sinusitis fungal [Recovering/Resolving]
  - Eye infection fungal [Recovering/Resolving]
  - Acute sinusitis [Recovering/Resolving]
  - Sinusitis [Recovering/Resolving]
  - Sinusitis [Recovering/Resolving]
  - Blindness unilateral [Not Recovered/Not Resolved]
